FAERS Safety Report 19425401 (Version 1)
Quarter: 2021Q2

REPORT INFORMATION
  Report Type: Spontaneous
  Country: CA (occurrence: CA)
  Receive Date: 20210617
  Receipt Date: 20210617
  Transmission Date: 20210717
  Serious: Yes (Other)
  Sender: FDA-Public Use
  Company Number: CA-NOVAST LABORATORIES INC.-2021NOV000273

PATIENT
  Age: 45 Year
  Sex: Male

DRUGS (3)
  1. INDOMETHACIN. [Suspect]
     Active Substance: INDOMETHACIN
     Indication: HEADACHE
     Dosage: 25 MILLIGRAM, TID
     Route: 065
  2. INDOMETHACIN. [Suspect]
     Active Substance: INDOMETHACIN
     Dosage: 75 MILLIGRAM, TID
     Route: 065
  3. INDOMETHACIN. [Suspect]
     Active Substance: INDOMETHACIN
     Dosage: 50 MILLIGRAM, TID
     Route: 065

REACTIONS (2)
  - Myoclonus [Recovered/Resolved]
  - Product use in unapproved indication [Unknown]
